FAERS Safety Report 4423809-7 (Version None)
Quarter: 2004Q3

REPORT INFORMATION
  Report Type: 
  Country: None (occurrence: None)
  Receive Date: 20040714
  Receipt Date: 20040412
  Transmission Date: 20050211
  Serious: Yes (Other)
  Sender: FDA-Public Use
  Company Number: HQWYE454914APR04

PATIENT
  Sex: Female

DRUGS (1)
  1. ALAVERT [Suspect]
     Indication: SEASONAL ALLERGY
     Dosage: 1 TABLET X 1, ORAL
     Route: 048
     Dates: start: 20040405, end: 20040405

REACTIONS (1)
  - NAUSEA [None]
